FAERS Safety Report 6600623-5 (Version None)
Quarter: 2010Q1

REPORT INFORMATION
  Report Type: 
  Country: None (occurrence: None)
  Receive Date: 20100223
  Receipt Date: 20100223
  Transmission Date: 20100710
  Serious: Yes (Other)
  Sender: FDA-Public Use
  Company Number: None

PATIENT
  Age: 49 Year
  Sex: Female
  Weight: 65.7716 kg

DRUGS (2)
  1. FEXOFENADINE [Suspect]
     Indication: MIDDLE EAR EFFUSION
     Dosage: 1 TABLET BY MOUTH DAILY
     Dates: start: 20100218, end: 20100220
  2. FLUTICASONE 50 MCG APOTEX [Suspect]
     Dosage: 2 SPRAYS EACH NASAL DAILY
     Route: 045
     Dates: start: 20100219, end: 20100220

REACTIONS (8)
  - CHEST DISCOMFORT [None]
  - COUGH [None]
  - DEHYDRATION [None]
  - DIZZINESS [None]
  - DYSPHONIA [None]
  - DYSPNOEA [None]
  - HEADACHE [None]
  - NASAL DISCOMFORT [None]
